FAERS Safety Report 13647727 (Version 1)
Quarter: 2017Q2

REPORT INFORMATION
  Report Type: Report from Study
  Country: None (occurrence: MX)
  Receive Date: 20170613
  Receipt Date: 20170613
  Transmission Date: 20170830
  Serious: Yes (Life-Threatening, Hospitalization)
  Sender: FDA-Public Use
  Company Number: MX-ABBVIE-17P-107-2005898-00

PATIENT
  Age: 73 Year
  Weight: 45 kg

DRUGS (4)
  1. TRILIPIX [Suspect]
     Active Substance: FENOFIBRIC ACID
     Indication: DYSLIPIDAEMIA
     Route: 048
     Dates: start: 20170131
  2. VALSARTA/DIOVAN [Concomitant]
     Indication: HYPERTENSION
     Route: 048
     Dates: start: 20160712
  3. ROSUVASTATINE [Concomitant]
     Active Substance: ROSUVASTATIN
     Indication: DYSLIPIDAEMIA
     Route: 048
     Dates: start: 20170102
  4. SAXAGLIPTINE/METFORMINA [Concomitant]
     Indication: BLOOD GLUCOSE ABNORMAL
     Route: 048
     Dates: start: 20151008

REACTIONS (1)
  - Suicide attempt [Recovered/Resolved]

NARRATIVE: CASE EVENT DATE: 20170328
